FAERS Safety Report 5487549-8 (Version None)
Quarter: 2007Q4

REPORT INFORMATION
  Report Type: 
  Country: None (occurrence: None)
  Receive Date: 20071016
  Receipt Date: 20071004
  Transmission Date: 20080405
  Serious: Yes (Other)
  Sender: FDA-Public Use
  Company Number: US-PFIZER INC-2007084901

PATIENT
  Sex: Female
  Weight: 56.363 kg

DRUGS (12)
  1. CHANTIX [Suspect]
     Dates: start: 20071001, end: 20071003
  2. GABAPENTIN [Concomitant]
  3. KEPPRA [Concomitant]
  4. LAMICTAL [Concomitant]
  5. SPIRIVA [Concomitant]
  6. NAMENDA [Concomitant]
     Dosage: DAILY DOSE:10MG-FREQ:DAILY
  7. EXELON [Concomitant]
     Dosage: DAILY DOSE:1.5MG-FREQ:DAILY
  8. ZOLOFT [Concomitant]
     Dosage: DAILY DOSE:100MG-FREQ:DAILY
  9. URISED [Concomitant]
  10. MORPHINE SULFATE [Concomitant]
     Dosage: DAILY DOSE:60MG-FREQ:DAILY
  11. ALLEGRA D 24 HOUR [Concomitant]
  12. ADVAIR DISKUS 100/50 [Concomitant]
     Dosage: TEXT:500/50-FREQ:DAILY

REACTIONS (5)
  - COLD SWEAT [None]
  - HYPERHIDROSIS [None]
  - NAUSEA [None]
  - TOOTH DISORDER [None]
  - VOMITING [None]
